FAERS Safety Report 7489924-9 (Version None)
Quarter: 2011Q2

REPORT INFORMATION
  Report Type: 
  Country: None (occurrence: None)
  Receive Date: 20110519
  Receipt Date: 20110502
  Transmission Date: 20111010
  Serious: No
  Sender: FDA-Public Use
  Company Number: US-B.I. PHARMACEUTICALS,INC./RIDGEFIELD-2011-BP-12247BP

PATIENT
  Sex: Male

DRUGS (6)
  1. DILTIAZEM [Concomitant]
  2. COREG [Concomitant]
     Indication: HYPERTENSION
  3. SIMVASTATIN [Concomitant]
     Indication: BLOOD CHOLESTEROL INCREASED
  4. PRADAXA [Suspect]
     Indication: ATRIAL FIBRILLATION
     Dosage: 300 MG
     Route: 048
     Dates: start: 20110301, end: 20110429
  5. PRADAXA [Suspect]
     Dosage: 150 MG
     Route: 048
     Dates: start: 20110430
  6. FUROSEMIDE [Concomitant]
     Indication: FLUID RETENTION

REACTIONS (4)
  - VEIN DISORDER [None]
  - FAECES DISCOLOURED [None]
  - HAEMATOCHEZIA [None]
  - DIZZINESS [None]
